FAERS Safety Report 5345059-2 (Version None)
Quarter: 2007Q2

REPORT INFORMATION
  Report Type: 
  Country: None (occurrence: None)
  Receive Date: 20070426
  Receipt Date: 20060810
  Transmission Date: 20071010
  Serious: Yes (Hospitalization)
  Sender: FDA-Public Use
  Company Number: CIP06001872

PATIENT
  Age: 60 Year
  Sex: Female

DRUGS (5)
  1. MACROBID [Suspect]
     Indication: URINARY TRACT INFECTION
     Dosage: 100 MG DAILY, ORAL
     Route: 048
  2. KETEK [Suspect]
     Indication: SINUSITIS
     Dosage: 800 MG, 1/DAY, ORAL
     Route: 048
     Dates: start: 20060121, end: 20060125
  3. ALLEGRA [Concomitant]
  4. MULTIVIT (VITAMINS NOS) [Concomitant]
  5. TYLENOL [Concomitant]

REACTIONS (6)
  - ABDOMINAL PAIN [None]
  - FATIGUE [None]
  - HEPATIC ENZYME INCREASED [None]
  - JAUNDICE [None]
  - NAUSEA [None]
  - URINE COLOUR ABNORMAL [None]
